FAERS Safety Report 16862210 (Version 1)
Quarter: 2019Q3

REPORT INFORMATION
  Report Type: Spontaneous
  Country: US (occurrence: US)
  Receive Date: 20190927
  Receipt Date: 20190927
  Transmission Date: 20191005
  Serious: No
  Sender: FDA-Public Use
  Company Number: US-ASTRAZENECA-2019SF25317

PATIENT
  Age: 23646 Day
  Sex: Female
  Weight: 80.7 kg

DRUGS (7)
  1. HERBAL MEDICATION [Concomitant]
     Active Substance: HERBALS
  2. NP THYROID [Concomitant]
     Active Substance: LEVOTHYROXINE\LIOTHYRONINE
  3. GLIMEPIRIDE. [Concomitant]
     Active Substance: GLIMEPIRIDE
  4. LOSARTAN. [Concomitant]
     Active Substance: LOSARTAN
  5. SODIUM BICARB [Concomitant]
     Active Substance: SODIUM BICARBONATE
     Indication: RENAL DISORDER
  6. BYDUREON BCISE [Suspect]
     Active Substance: EXENATIDE
     Indication: DIABETES MELLITUS
     Route: 058
     Dates: start: 20190809
  7. BIOTE DIETARY SUPPLEMENT [Concomitant]

REACTIONS (3)
  - Injection site haemorrhage [Unknown]
  - Product dose omission [Unknown]
  - Wrong technique in device usage process [Unknown]

NARRATIVE: CASE EVENT DATE: 20190823
